FAERS Safety Report 7113568-1 (Version None)
Quarter: 2010Q4

REPORT INFORMATION
  Report Type: 
  Country: None (occurrence: None)
  Receive Date: 20101119
  Receipt Date: 20101111
  Transmission Date: 20110411
  Serious: Yes (Hospitalization, Other)
  Sender: FDA-Public Use
  Company Number: US-ROCHE-721201

PATIENT
  Sex: Female
  Weight: 50.8 kg

DRUGS (4)
  1. PEGINTERFERON ALFA-2A [Suspect]
     Indication: HEPATITIS C
     Dosage: FORM: PRE-FILLED SYRINGE;
     Route: 065
     Dates: start: 20100205, end: 20100917
  2. PEGINTERFERON ALFA-2A [Suspect]
     Dosage: WEEK 37 OF TREATMENT (EVERY FRIDAY)
     Route: 065
     Dates: start: 20101008
  3. RIBAVIRIN [Suspect]
     Indication: HEPATITIS C
     Dosage: DIVIDED DOSES;
     Route: 065
     Dates: start: 20100205, end: 20100917
  4. RIBAVIRIN [Suspect]
     Dosage: DIVIDED DOSES, WEEK 37 OF TREATMENT
     Route: 065
     Dates: start: 20101008

REACTIONS (15)
  - ALOPECIA [None]
  - DECREASED APPETITE [None]
  - DEHYDRATION [None]
  - FALL [None]
  - FATIGUE [None]
  - FURUNCLE [None]
  - INFECTION [None]
  - MUSCULOSKELETAL PAIN [None]
  - NAUSEA [None]
  - STAPHYLOCOCCAL INFECTION [None]
  - TOOTH DISORDER [None]
  - VISION BLURRED [None]
  - VOMITING [None]
  - WEIGHT DECREASED [None]
  - WHITE BLOOD CELL COUNT DECREASED [None]
